FAERS Safety Report 9036040 (Version 1)
Quarter: 2013Q1

REPORT INFORMATION
  Report Type: Report from Study
  Country: US (occurrence: US)
  Receive Date: 20130129
  Receipt Date: 20130129
  Transmission Date: 20140127
  Serious: No
  Sender: FDA-Public Use
  Company Number: US-ABBOTT-12P-163-0911148-00

PATIENT
  Age: 50 Year
  Sex: Female

DRUGS (10)
  1. UNKNOWN MEDICATION [Concomitant]
     Indication: THYROID DISORDER
  2. ACTOS [Concomitant]
     Indication: DIABETES MELLITUS
  3. BENICAR [Concomitant]
     Indication: HYPERTENSION
  4. VITAMIN D [Concomitant]
     Indication: PRODUCT USED FOR UNKNOWN INDICATION
  5. VENTONLIN [Concomitant]
     Indication: ASTHMA
  6. LASIX [Concomitant]
     Indication: FLUID RETENTION
  7. DULCOLAX [Concomitant]
     Indication: CONSTIPATION PROPHYLAXIS
  8. IRON [Concomitant]
     Indication: PRODUCT USED FOR UNKNOWN INDICATION
  9. JANUVIA [Concomitant]
     Indication: DIABETES MELLITUS
  10. HUMIRA 40 MG/0.8 ML PEN [Suspect]
     Indication: PSORIASIS
     Dates: start: 20120124

REACTIONS (3)
  - Skin hyperpigmentation [Recovering/Resolving]
  - Pruritus [Recovered/Resolved]
  - Injection site pain [Recovered/Resolved]
